FAERS Safety Report 12514722 (Version 1)
Quarter: 2016Q2

REPORT INFORMATION
  Report Type: Spontaneous
  Country: US (occurrence: US)
  Receive Date: 20160630
  Receipt Date: 20160630
  Transmission Date: 20160815
  Serious: No
  Sender: FDA-Public Use
  Company Number: US-JNJFOC-20160528218

PATIENT
  Age: 37 Year
  Sex: Male
  Weight: 63.5 kg

DRUGS (1)
  1. XARELTO [Suspect]
     Active Substance: RIVAROXABAN
     Indication: DEEP VEIN THROMBOSIS
     Route: 048
     Dates: start: 201407

REACTIONS (3)
  - Headache [Unknown]
  - Extra dose administered [Unknown]
  - Panic reaction [Not Recovered/Not Resolved]

NARRATIVE: CASE EVENT DATE: 201605
